FAERS Safety Report 6568557-2 (Version None)
Quarter: 2010Q1

REPORT INFORMATION
  Report Type: 
  Country: None (occurrence: None)
  Receive Date: 20100203
  Receipt Date: 20100126
  Transmission Date: 20100710
  Serious: Yes (Other)
  Sender: FDA-Public Use
  Company Number: US-PERRIGO-10US006620

PATIENT
  Sex: Female
  Weight: 51.701 kg

DRUGS (1)
  1. DIPHENHYDRAMINE HYDROCHLORIDE 25 MG 431 [Suspect]
     Indication: INSOMNIA
     Dosage: 50 MG, 0330 AM, ONCE
     Route: 048
     Dates: start: 20091230, end: 20091230

REACTIONS (5)
  - MUSCULOSKELETAL CHEST PAIN [None]
  - RHINALGIA [None]
  - ROAD TRAFFIC ACCIDENT [None]
  - SOMNOLENCE [None]
  - SUDDEN ONSET OF SLEEP [None]
